FAERS Safety Report 11403626 (Version 1)
Quarter: 2015Q3

REPORT INFORMATION
  Report Type: Spontaneous
  Country: US (occurrence: US)
  Receive Date: 20150821
  Receipt Date: 20150821
  Transmission Date: 20151125
  Serious: No
  Sender: FDA-Public Use
  Company Number: US-TEVA-527754USA

PATIENT
  Age: 20 Year
  Sex: Female

DRUGS (1)
  1. ISONIAZID. [Suspect]
     Active Substance: ISONIAZID

REACTIONS (2)
  - Peripheral swelling [Not Recovered/Not Resolved]
  - Hypoaesthesia [Not Recovered/Not Resolved]
